FAERS Safety Report 14913163 (Version 4)
Quarter: 2018Q4

REPORT INFORMATION
  Report Type: Spontaneous
  Country: JP (occurrence: JP)
  Receive Date: 20180518
  Receipt Date: 20181110
  Transmission Date: 20190204
  Serious: Yes (Other)
  Sender: FDA-Public Use
  Company Number: PHJP2018JP010864

PATIENT
  Age: 60 Year
  Sex: Male

DRUGS (4)
  1. TAFINLAR [Suspect]
     Active Substance: DABRAFENIB MESYLATE
     Indication: MALIGNANT MELANOMA
     Dosage: 300 MG, UNK
     Route: 048
  2. MEKINIST [Suspect]
     Active Substance: TRAMETINIB DIMETHYL SULFOXIDE
     Dosage: 2 MG, UNK
     Route: 048
     Dates: end: 20180930
  3. MEKINIST [Suspect]
     Active Substance: TRAMETINIB DIMETHYL SULFOXIDE
     Indication: MALIGNANT MELANOMA
     Dosage: 2 MG, UNK
     Route: 048
  4. TAFINLAR [Suspect]
     Active Substance: DABRAFENIB MESYLATE
     Dosage: 300 MG, UNK
     Route: 048
     Dates: end: 20180930

REACTIONS (4)
  - Neutrophil count decreased [Recovered/Resolved]
  - Ileus [Recovered/Resolved]
  - Malignant melanoma [Not Recovered/Not Resolved]
  - Malignant neoplasm progression [Not Recovered/Not Resolved]

NARRATIVE: CASE EVENT DATE: 20180515
